FAERS Safety Report 6316828-7 (Version None)
Quarter: 2009Q3

REPORT INFORMATION
  Report Type: 
  Country: None (occurrence: None)
  Receive Date: 20090820
  Receipt Date: 20090812
  Transmission Date: 20100115
  Serious: Yes (Hospitalization)
  Sender: FDA-Public Use
  Company Number: BR-ROCHE-511271

PATIENT
  Sex: Female
  Weight: 68 kg

DRUGS (3)
  1. XENICAL [Suspect]
     Indication: WEIGHT CONTROL
     Route: 048
     Dates: start: 20070401, end: 20070804
  2. DORMONID [Suspect]
     Indication: INSOMNIA
     Route: 048
  3. SIBUTRAMINE [Concomitant]
     Indication: WEIGHT CONTROL
     Route: 048
     Dates: start: 20070401, end: 20070804

REACTIONS (2)
  - HOSPITALISATION [None]
  - PANCREATITIS ACUTE [None]
